FAERS Safety Report 9972955 (Version 1)
Quarter: 2014Q1

REPORT INFORMATION
  Report Type: Other
  Country: GB (occurrence: GB)
  Receive Date: 20140306
  Receipt Date: 20140306
  Transmission Date: 20141002
  Serious: Yes (Death, Other)
  Sender: FDA-Public Use
  Company Number: GB-PERRIGO-14GB002077

PATIENT
  Age: 13 Year
  Sex: Female
  Weight: 50 kg

DRUGS (5)
  1. IBUPROFEN 16028/0027 200 MG [Suspect]
     Indication: HEADACHE
     Dosage: UNK
     Route: 065
  2. PARACETAMOL [Concomitant]
     Indication: HEADACHE
     Dosage: UNK
     Route: 065
  3. PIZOTIFEN [Concomitant]
     Indication: HEADACHE
     Dosage: UNK
     Route: 065
  4. PIZOTIFEN [Concomitant]
     Indication: HYPOAESTHESIA
  5. PIZOTIFEN [Concomitant]
     Indication: DYSARTHRIA

REACTIONS (3)
  - Gastric haemorrhage [Fatal]
  - Pulmonary haemorrhage [Fatal]
  - Haemorrhagic erosive gastritis [Not Recovered/Not Resolved]
